FAERS Safety Report 5445706-0 (Version None)
Quarter: 2007Q3

REPORT INFORMATION
  Report Type: 
  Country: None (occurrence: None)
  Receive Date: 20070904
  Receipt Date: 20070828
  Transmission Date: 20080115
  Serious: Yes (Hospitalization, Other)
  Sender: FDA-Public Use
  Company Number: 2007SP017412

PATIENT
  Age: 56 Year
  Sex: Male

DRUGS (2)
  1. PEG-INTRON [Suspect]
     Indication: HEPATITIS C
     Dates: start: 20040317
  2. REBETOL [Suspect]
     Indication: HEPATITIS C
     Dosage: PO
     Dates: start: 20040317

REACTIONS (6)
  - BONE DISORDER [None]
  - CELLULITIS [None]
  - INFECTION [None]
  - LIMB INJURY [None]
  - PAIN [None]
  - POISONING [None]
